FAERS Safety Report 24809505 (Version 1)
Quarter: 2025Q1

REPORT INFORMATION
  Report Type: Spontaneous
  Country: FR (occurrence: FR)
  Receive Date: 20250106
  Receipt Date: 20250106
  Transmission Date: 20250408
  Serious: Yes (Hospitalization)
  Sender: ORGANON
  Company Number: None

PATIENT
  Age: 33 Year
  Sex: Female
  Weight: 55 kg

DRUGS (3)
  1. BETAMETHASONE [Suspect]
     Active Substance: BETAMETHASONE
     Indication: Premature delivery
     Dosage: 5.7MG/ML 1 DAY (DOSAGE FORM:1FP)
     Route: 030
     Dates: start: 20241130, end: 20241201
  2. ATOSIBAN [Suspect]
     Active Substance: ATOSIBAN
     Indication: Premature delivery
     Route: 042
     Dates: start: 20241201, end: 20241202
  3. NICARDIPINE HYDROCHLORIDE [Suspect]
     Active Substance: NICARDIPINE HYDROCHLORIDE
     Indication: Premature delivery
     Dosage: 50 MG 1 DAY (DOSAGE FORM:1FP)
     Route: 048
     Dates: start: 20241130, end: 20241130

REACTIONS (1)
  - Pleural effusion [Recovering/Resolving]

NARRATIVE: CASE EVENT DATE: 20241205
